FAERS Safety Report 6299758-9 (Version None)
Quarter: 2009Q4

REPORT INFORMATION
  Report Type: 
  Country: None (occurrence: None)
  Receive Date: 20090806
  Receipt Date: 20090723
  Transmission Date: 20100525
  Serious: Yes (Other)
  Sender: FDA-Public Use
  Company Number: US-JNJFOC-20090801061

PATIENT
  Age: 52 Year
  Weight: 59.06 kg

DRUGS (19)
  1. DARUNAVIR [Suspect]
     Route: 048
  2. DARUNAVIR [Suspect]
     Indication: HIV INFECTION
     Route: 048
  3. ETRAVIRINE [Suspect]
     Route: 048
  4. ETRAVIRINE [Suspect]
     Indication: HIV INFECTION
     Route: 048
  5. RALTEGRAVIR [Suspect]
     Route: 048
  6. RALTEGRAVIR [Suspect]
     Indication: HIV INFECTION
     Route: 048
  7. TRUVADA [Suspect]
     Route: 048
  8. TRUVADA [Suspect]
     Indication: HIV INFECTION
     Route: 048
  9. RITONAVIR [Suspect]
     Route: 048
  10. RITONAVIR [Suspect]
     Indication: HIV INFECTION
     Route: 048
  11. ZIDOVUDINE [Suspect]
     Indication: HIV INFECTION
     Route: 048
  12. TRICOR [Suspect]
     Indication: DRUG USE FOR UNKNOWN INDICATION
     Route: 065
  13. GENERAL ANAESTHETIC [Suspect]
     Indication: CYSTOSCOPY
  14. TESTOSTERONE [Concomitant]
  15. INDERAL [Concomitant]
  16. RESTORIL [Concomitant]
  17. LUNESTA [Concomitant]
  18. MEPRON [Concomitant]
  19. IMODIUM [Concomitant]

REACTIONS (1)
  - RHABDOMYOLYSIS [None]
